FAERS Safety Report 16716103 (Version 1)
Quarter: 2019Q4

REPORT INFORMATION
  Report Type: Spontaneous
  Country: US (occurrence: US)
  Receive Date: 20190817
  Receipt Date: 20190817
  Transmission Date: 20200122
  Serious: No
  Sender: FDA-Public Use
  Company Number: None

PATIENT
  Age: 43 Year
  Sex: Female
  Weight: 101.25 kg

DRUGS (17)
  1. VITAMIN D [Concomitant]
     Active Substance: VITAMIN D NOS
  2. ZYRTEC [Concomitant]
     Active Substance: CETIRIZINE HYDROCHLORIDE
  3. LEVOTHYROXINE. [Concomitant]
     Active Substance: LEVOTHYROXINE
  4. ALBUTERAL [Concomitant]
     Active Substance: ALBUTEROL
  5. TYLENOL EXTRA STRENGTH [Concomitant]
     Active Substance: ACETAMINOPHEN
  6. BACLOFEN. [Concomitant]
     Active Substance: BACLOFEN
  7. RESTASIS [Concomitant]
     Active Substance: CYCLOSPORINE
  8. SINGULAIR [Concomitant]
     Active Substance: MONTELUKAST SODIUM
  9. CYMBALTA [Concomitant]
     Active Substance: DULOXETINE HYDROCHLORIDE
  10. TRI-SPRINTEC [Concomitant]
     Active Substance: ETHINYL ESTRADIOL\NORGESTIMATE
  11. TRULICITY [Suspect]
     Active Substance: DULAGLUTIDE
     Indication: TYPE 2 DIABETES MELLITUS
     Dosage: ?          QUANTITY:1 INJECTION(S);OTHER FREQUENCY:ONCE A WEEK;OTHER ROUTE:INJECTION?
     Dates: start: 20190312, end: 20190806
  12. DEXILANT [Concomitant]
     Active Substance: DEXLANSOPRAZOLE
  13. JARDIANCE [Concomitant]
     Active Substance: EMPAGLIFLOZIN
  14. ROSUVASTATIN. [Concomitant]
     Active Substance: ROSUVASTATIN
  15. HYDROXYZINE [Concomitant]
     Active Substance: HYDROXYZINE HYDROCHLORIDE
  16. LOSARTAN. [Concomitant]
     Active Substance: LOSARTAN
  17. VITAMIN B12 [Concomitant]
     Active Substance: CYANOCOBALAMIN

REACTIONS (2)
  - Panniculitis [None]
  - Therapy change [None]

NARRATIVE: CASE EVENT DATE: 20190325
